FAERS Safety Report 8049451-7 (Version None)
Quarter: 2012Q1

REPORT INFORMATION
  Report Type: 
  Country: None (occurrence: None)
  Receive Date: 20120117
  Receipt Date: 20120106
  Transmission Date: 20120608
  Serious: Yes (Other)
  Sender: FDA-Public Use
  Company Number: GB-PFIZER INC-2012010809

PATIENT
  Sex: Male

DRUGS (1)
  1. MORPHINE SULFATE [Suspect]
     Indication: SPINAL DISORDER
     Dosage: 90 MG, 2X/DAY
     Route: 048

REACTIONS (4)
  - HEART RATE INCREASED [None]
  - PAIN [None]
  - INTRACRANIAL PRESSURE INCREASED [None]
  - MALAISE [None]
